FAERS Safety Report 6841361-3 (Version None)
Quarter: 2010Q3

REPORT INFORMATION
  Report Type: 
  Country: None (occurrence: None)
  Receive Date: 20100714
  Receipt Date: 20070702
  Transmission Date: 20110219
  Serious: No
  Sender: FDA-Public Use
  Company Number: US-PFIZER INC-2007055678

PATIENT
  Sex: Female
  Weight: 68.181 kg

DRUGS (5)
  1. CHANTIX [Suspect]
     Indication: SMOKING CESSATION THERAPY
     Dates: start: 20070101, end: 20070601
  2. NASAL PREPARATIONS [Concomitant]
     Indication: BLOOD CALCIUM
  3. ACETYLSALICYLIC ACID [Concomitant]
  4. NIACIN [Concomitant]
  5. ZOCOR [Concomitant]

REACTIONS (3)
  - DYSPEPSIA [None]
  - INSOMNIA [None]
  - NAUSEA [None]
